FAERS Safety Report 23162983 (Version 4)
Quarter: 2023Q4

REPORT INFORMATION
  Report Type: Report from Study
  Country: US (occurrence: US)
  Receive Date: 20231109
  Receipt Date: 20231205
  Transmission Date: 20240109
  Serious: Yes (Hospitalization)
  Sender: FDA-Public Use
  Company Number: US-ABBVIE-5486922

PATIENT
  Sex: Female
  Weight: 63 kg

DRUGS (18)
  1. IMBRUVICA [Suspect]
     Active Substance: IBRUTINIB
     Indication: Acute lymphocytic leukaemia
     Route: 048
     Dates: start: 20231108
  2. IMBRUVICA [Suspect]
     Active Substance: IBRUTINIB
     Indication: Acute lymphocytic leukaemia
     Dosage: STRENGTH: 560 MG
     Route: 048
     Dates: start: 20231030, end: 20231104
  3. BLINATUMOMAB [Suspect]
     Active Substance: BLINATUMOMAB
     Indication: Acute lymphocytic leukaemia
     Dosage: STRENGTH- 9 MICROGRAM
     Route: 042
     Dates: start: 20231107
  4. ACYCLOVIR [Concomitant]
     Active Substance: ACYCLOVIR
     Indication: Infection prophylaxis
     Route: 048
     Dates: start: 20231023
  5. DEXAMETHASONE [Concomitant]
     Active Substance: DEXAMETHASONE
     Indication: Cytokine release syndrome
     Route: 048
     Dates: start: 20231106, end: 20231120
  6. URSODIOL [Concomitant]
     Active Substance: URSODIOL
     Indication: Vascular disorder prophylaxis
     Dosage: 300 MG
     Route: 048
     Dates: start: 20230718
  7. URSODIOL [Concomitant]
     Active Substance: URSODIOL
     Indication: Vascular disorder prophylaxis
     Route: 048
     Dates: start: 20231103, end: 20231105
  8. COMPAZINE [Concomitant]
     Active Substance: PROCHLORPERAZINE MALEATE
     Indication: Product used for unknown indication
     Dosage: 5 MG
     Dates: start: 20231023
  9. ALLOPURINOL [Concomitant]
     Active Substance: ALLOPURINOL
     Indication: Product used for unknown indication
     Dosage: 300 MG
     Dates: start: 20231026
  10. FAMOTIDINE [Concomitant]
     Active Substance: FAMOTIDINE
     Indication: Product used for unknown indication
     Dosage: 20 MG
     Dates: start: 20231104
  11. ACETAMINOPHEN [Concomitant]
     Active Substance: ACETAMINOPHEN
     Indication: Product used for unknown indication
     Dosage: 650 MG
     Dates: start: 20231113
  12. OXYCODONE [Concomitant]
     Active Substance: OXYCODONE
     Indication: Product used for unknown indication
     Dosage: 5 MG
     Dates: start: 20231110
  13. CRESEMBA [Concomitant]
     Active Substance: ISAVUCONAZONIUM SULFATE
     Indication: Product used for unknown indication
     Dosage: 372 MG
     Dates: start: 20231116
  14. LEVOFLOXACIN [Concomitant]
     Active Substance: LEVOFLOXACIN
     Indication: Antibiotic prophylaxis
     Route: 048
     Dates: start: 20231115
  15. ATOVAQUONE [Concomitant]
     Active Substance: ATOVAQUONE
     Indication: Antibiotic prophylaxis
     Dosage: LIQUID
     Route: 048
     Dates: start: 20230804
  16. PROCHLORPERAZINE [Concomitant]
     Active Substance: PROCHLORPERAZINE
     Indication: Prophylaxis of nausea and vomiting
     Route: 048
     Dates: start: 20231023
  17. TRAMADOL [Concomitant]
     Active Substance: TRAMADOL\TRAMADOL HYDROCHLORIDE
     Indication: Pain
     Route: 048
     Dates: start: 20231020, end: 20231106
  18. SODIUM CHLORIDE [Concomitant]
     Active Substance: SODIUM CHLORIDE
     Indication: Cytokine release syndrome
     Dosage: 500-1000 ML
     Route: 042
     Dates: start: 20231113, end: 20231120

REACTIONS (8)
  - Febrile neutropenia [Recovered/Resolved]
  - Pain [Unknown]
  - Back pain [Recovered/Resolved]
  - Back pain [Not Recovered/Not Resolved]
  - Musculoskeletal pain [Unknown]
  - Arthralgia [Recovering/Resolving]
  - Gait disturbance [Unknown]
  - Bacteraemia [Unknown]

NARRATIVE: CASE EVENT DATE: 20230101
